FAERS Safety Report 21808436 (Version 1)
Quarter: 2023Q1

REPORT INFORMATION
  Report Type: Report from Study
  Country: IN (occurrence: IN)
  Receive Date: 20230103
  Receipt Date: 20230103
  Transmission Date: 20230417
  Serious: Yes (Death, Other)
  Sender: FDA-Public Use
  Company Number: IN-002147023-NVSC2020IN347956

PATIENT
  Age: 67 Year
  Sex: Female

DRUGS (5)
  1. TASIGNA [Suspect]
     Active Substance: NILOTINIB
     Indication: Chronic myeloid leukaemia
     Dosage: 300 MG, BID
     Route: 048
     Dates: start: 20170530
  2. TASIGNA [Suspect]
     Active Substance: NILOTINIB
     Dosage: 600 MG, BID
     Route: 065
     Dates: start: 20170531, end: 20221208
  3. TASIGNA [Suspect]
     Active Substance: NILOTINIB
     Dosage: 300 MG, BID
     Route: 048
     Dates: start: 20220105
  4. TASIGNA [Suspect]
     Active Substance: NILOTINIB
     Dosage: 3 DOSAGE FORM (200 MG), BID
     Route: 065
     Dates: start: 20220812
  5. TASIGNA [Suspect]
     Active Substance: NILOTINIB
     Dosage: 400 MG, BID
     Route: 065
     Dates: start: 20220927

REACTIONS (3)
  - Death [Fatal]
  - Cytopenia [Recovering/Resolving]
  - Product use issue [Unknown]

NARRATIVE: CASE EVENT DATE: 20201130
